FAERS Safety Report 6112757-2 (Version None)
Quarter: 2009Q1

REPORT INFORMATION
  Report Type: 
  Country: None (occurrence: None)
  Receive Date: 20090312
  Receipt Date: 20090303
  Transmission Date: 20090719
  Serious: Yes (Hospitalization)
  Sender: FDA-Public Use
  Company Number: US-RB-0011231-09

PATIENT
  Age: 50 Year
  Sex: Male

DRUGS (1)
  1. MUCINEX DM [Suspect]
     Dosage: TAKEN 3 - 4 DOSES
     Route: 048
     Dates: start: 20090201

REACTIONS (2)
  - ANXIETY [None]
  - DYSPNOEA [None]
